FAERS Safety Report 5382415-0 (Version None)
Quarter: 2007Q3

REPORT INFORMATION
  Report Type: 
  Country: None (occurrence: None)
  Receive Date: 20070709
  Receipt Date: 20070702
  Transmission Date: 20080115
  Serious: Yes (Life-Threatening, Other)
  Sender: FDA-Public Use
  Company Number: JP-MERCK-0705USA05738

PATIENT
  Age: 93 Year
  Sex: Female
  Weight: 30 kg

DRUGS (19)
  1. HYZAAR [Suspect]
     Indication: HYPERTENSION
     Route: 048
     Dates: start: 20070509, end: 20070521
  2. NORVASC [Suspect]
     Indication: HYPERTENSION
     Route: 048
     Dates: start: 20070509, end: 20070521
  3. DIOVAN [Concomitant]
     Indication: HYPERTENSION
     Route: 048
     Dates: start: 20070429, end: 20070508
  4. [THERAPY UNSPECIFIED] [Concomitant]
     Route: 048
     Dates: start: 20070429, end: 20070508
  5. FRANDOL TAPE S [Concomitant]
     Route: 061
     Dates: end: 20070508
  6. NEUROTROPIN [Concomitant]
     Indication: BACK PAIN
     Route: 048
     Dates: start: 20070429, end: 20070609
  7. PEPCID [Concomitant]
     Indication: PROPHYLAXIS AGAINST GASTROINTESTINAL ULCER
     Route: 048
     Dates: start: 20070509, end: 20070609
  8. ZOLPIDEM TARTRATE [Concomitant]
     Indication: INSOMNIA
     Route: 048
     Dates: start: 20070429, end: 20070609
  9. MUCOSTA [Concomitant]
     Indication: PROPHYLAXIS AGAINST GASTROINTESTINAL ULCER
     Route: 048
     Dates: start: 20070509, end: 20070609
  10. CLOSTRIDIUM BUTYRICUM [Concomitant]
     Indication: PROPHYLAXIS AGAINST GASTROINTESTINAL ULCER
     Route: 048
     Dates: start: 20070509, end: 20070609
  11. DOCUSATE SODIUM AND SENNA [Concomitant]
     Route: 048
     Dates: start: 20070429, end: 20070508
  12. PINDOLOL [Concomitant]
     Route: 048
     Dates: start: 20070508, end: 20070508
  13. ADALAT [Concomitant]
     Route: 048
     Dates: start: 20070508, end: 20070508
  14. NITRODERM [Concomitant]
     Route: 061
     Dates: start: 20070509, end: 20070522
  15. ELECTROLYTES (UNSPECIFIED) AND SODIUM LACTATE [Concomitant]
     Route: 042
  16. FURSULTIAMINE HYDROCHLORIDE [Concomitant]
     Route: 042
  17. VITA C [Concomitant]
     Route: 042
  18. RIBOFLAVIN 5'-PHOSPHATE SODIUM [Concomitant]
     Route: 042
  19. CYANOCOBALAMIN [Concomitant]
     Route: 051

REACTIONS (3)
  - BEDRIDDEN [None]
  - DECREASED APPETITE [None]
  - MALAISE [None]
